FAERS Safety Report 13820339 (Version 1)
Quarter: 2017Q3

REPORT INFORMATION
  Report Type: Spontaneous
  Country: US (occurrence: US)
  Receive Date: 20170801
  Receipt Date: 20170801
  Transmission Date: 20171127
  Serious: Yes (Life-Threatening, Hospitalization)
  Sender: FDA-Public Use
  Company Number: None

PATIENT
  Age: 17 Year
  Sex: Female
  Weight: 52 kg

DRUGS (1)
  1. ISOTRETINOIN 30MG TEVA [Suspect]
     Active Substance: ISOTRETINOIN
     Indication: ACNE
     Dosage: HAD BEEN ON 40 MG DAILY SINCE 2/2017
     Route: 048
     Dates: start: 201702, end: 20170626

REACTIONS (2)
  - Overdose [None]
  - Suicide attempt [None]

NARRATIVE: CASE EVENT DATE: 20170713
